FAERS Safety Report 7761341-3 (Version None)
Quarter: 2011Q3

REPORT INFORMATION
  Report Type: 
  Country: None (occurrence: None)
  Receive Date: 20110920
  Receipt Date: 20110914
  Transmission Date: 20111222
  Serious: Yes (Other)
  Sender: FDA-Public Use
  Company Number: US-PFIZER INC-2011217861

PATIENT
  Sex: Female
  Weight: 93.424 kg

DRUGS (5)
  1. TRIAMTERENE AND HYDROCHLOROTHIAZIDE [Concomitant]
     Indication: DIURETIC THERAPY
     Dosage: 37.5/25 MG, DAILY
  2. TRIAMTERENE AND HYDROCHLOROTHIAZIDE [Concomitant]
     Indication: BLOOD PRESSURE ABNORMAL
  3. GABAPENTIN [Suspect]
     Indication: HERPES ZOSTER
     Dosage: 400 MG, 3X/DAY
     Route: 048
     Dates: start: 20061001
  4. GABAPENTIN [Suspect]
     Indication: POST HERPETIC NEURALGIA
     Dosage: 300 MG, 3X/DAY
     Route: 048
  5. LEVOXYL [Concomitant]
     Indication: THYROID DISORDER
     Dosage: 0.1 MG, DAILY

REACTIONS (1)
  - TYPE 2 DIABETES MELLITUS [None]
